FAERS Safety Report 8500197-8 (Version None)
Quarter: 2012Q3

REPORT INFORMATION
  Report Type: 
  Country: None (occurrence: None)
  Receive Date: 20120710
  Receipt Date: 20120703
  Transmission Date: 20120928
  Serious: No
  Sender: FDA-Public Use
  Company Number: US-PFIZER INC-2012155236

PATIENT
  Sex: Male
  Weight: 111 kg

DRUGS (7)
  1. LORAZEPAM [Suspect]
     Dosage: UNK
  2. WELLBUTRIN [Concomitant]
     Indication: DEPRESSION
     Dosage: 100 MG, 3X/DAY
  3. LYRICA [Suspect]
     Indication: GAIT DISTURBANCE
  4. FINASTERIDE [Concomitant]
     Indication: PROSTATOMEGALY
     Dosage: 5 MG, DAILY
  5. LORAZEPAM [Suspect]
     Indication: ANXIETY
     Dosage: 1 MG, 3X/DAY
  6. LYRICA [Suspect]
     Indication: NEUROPATHY PERIPHERAL
     Dosage: 200 MG, 3X/DAY
     Dates: end: 20120601
  7. BUSPAR [Concomitant]
     Indication: AFFECTIVE DISORDER
     Dosage: 10 MG, 3X/DAY

REACTIONS (5)
  - GAIT DISTURBANCE [None]
  - NERVOUSNESS [None]
  - TREMOR [None]
  - LIMB DISCOMFORT [None]
  - BURNING SENSATION [None]
